FAERS Safety Report 12637046 (Version 1)
Quarter: 2016Q3

REPORT INFORMATION
  Report Type: Not Available
  Country: US (occurrence: US)
  Receive Date: 20160809
  Receipt Date: 20160809
  Transmission Date: 20161109
  Serious: Yes (Hospitalization)
  Sender: FDA-Public Use
  Company Number: US-BEH-2014042196

PATIENT
  Sex: Male
  Weight: 75.2 kg

DRUGS (1)
  1. PRIVIGEN [Suspect]
     Active Substance: HUMAN IMMUNOGLOBULIN G
     Route: 041
     Dates: start: 20130524, end: 20130529

REACTIONS (8)
  - Autoimmune disorder [Unknown]
  - Haemolysis [Unknown]
  - Red blood cell spherocytes present [Unknown]
  - Paraneoplastic syndrome [Unknown]
  - Vasculitis [Unknown]
  - Asthenia [Unknown]
  - Headache [Unknown]
  - Infection [Unknown]

NARRATIVE: CASE EVENT DATE: 20130601
